FAERS Safety Report 4703517-5 (Version None)
Quarter: 2005Q2

REPORT INFORMATION
  Report Type: 
  Country: None (occurrence: None)
  Receive Date: 20050630
  Receipt Date: 20050511
  Transmission Date: 20051028
  Serious: Yes (Other)
  Sender: FDA-Public Use
  Company Number: US-BRISTOL-MYERS SQUIBB COMPANY-12963997

PATIENT
  Age: 4 Year
  Sex: Male
  Weight: 20 kg

DRUGS (3)
  1. ABILIFY ORAL SOLUTION 1 MG/ML [Suspect]
     Indication: BIPOLAR DISORDER
     Dosage: DOSE = 1/2 TSP ONCE DAILY
     Route: 048
     Dates: start: 20050503
  2. NOVOLOG [Concomitant]
     Indication: BLOOD GLUCOSE INCREASED
  3. LANTUS [Concomitant]

REACTIONS (1)
  - HYPERGLYCAEMIA [None]
